FAERS Safety Report 6992366-3 (Version None)
Quarter: 2010Q3

REPORT INFORMATION
  Report Type: 
  Country: None (occurrence: None)
  Receive Date: 20100915
  Receipt Date: 20100901
  Transmission Date: 20110219
  Serious: Yes (Other)
  Sender: FDA-Public Use
  Company Number: 2010-2944

PATIENT
  Age: 2 Year
  Sex: Male
  Weight: 11.3 kg

DRUGS (1)
  1. INCRELEX [Suspect]
     Indication: INSULIN-LIKE GROWTH FACTOR DECREASED
     Dosage: 8 UNITS (4 UNITS, 2 IN 1 D), SUBCUTANEOUS,  (4 UNITS,AT LEAST ONCE PER  DAY), SUBCUTANEOUS
     Route: 058
     Dates: start: 20100810

REACTIONS (6)
  - HYPERHIDROSIS [None]
  - HYPOGLYCAEMIA [None]
  - LIP DISCOLOURATION [None]
  - LOSS OF CONSCIOUSNESS [None]
  - MALAISE [None]
  - SKIN DISCOLOURATION [None]
